FAERS Safety Report 16155135 (Version 3)
Quarter: 2019Q2

REPORT INFORMATION
  Report Type: Report from Study
  Country: FR (occurrence: FR)
  Receive Date: 20190403
  Receipt Date: 20190617
  Transmission Date: 20190711
  Serious: Yes (Hospitalization, Other)
  Sender: FDA-Public Use
  Company Number: FR-JAZZ-2019-FR-002785

PATIENT

DRUGS (7)
  1. WAKIX [Concomitant]
     Active Substance: PITOLISANT HYDROCHLORIDE
  2. XYREM [Suspect]
     Active Substance: SODIUM OXYBATE
     Dosage: 4.5 G, QD
     Route: 048
  3. CONCERTA [Concomitant]
     Active Substance: METHYLPHENIDATE HYDROCHLORIDE
  4. INOFER [Concomitant]
     Active Substance: FERROUS SUCCINATE\SUCCINIC ACID
  5. RITALINE [Concomitant]
     Active Substance: METHYLPHENIDATE HYDROCHLORIDE
  6. XYREM [Suspect]
     Active Substance: SODIUM OXYBATE
     Indication: HYPERSOMNIA
     Dosage: 2.25 G, QD
     Route: 048
     Dates: start: 20190208
  7. LEELOO [Concomitant]
     Active Substance: ETHINYL ESTRADIOL\LEVONORGESTREL

REACTIONS (6)
  - Product use in unapproved indication [Unknown]
  - Somnolence [Unknown]
  - Wrong technique in product usage process [Unknown]
  - Vomiting [Recovered/Resolved]
  - Delirium [Recovered/Resolved]
  - Nausea [Recovering/Resolving]

NARRATIVE: CASE EVENT DATE: 20190225
